FAERS Safety Report 8701563 (Version 2)
Quarter: 2013Q4

REPORT INFORMATION
  Report Type: Spontaneous
  Country: GB (occurrence: GB)
  Receive Date: 20120803
  Receipt Date: 20131031
  Transmission Date: 20140711
  Serious: Yes (Other)
  Sender: FDA-Public Use
  Company Number: GB-009507513-1207GBR012578

PATIENT
  Age: 75 Year
  Sex: Male

DRUGS (20)
  1. INVANZ [Suspect]
     Indication: URINARY TRACT INFECTION
     Dosage: 1 UNK, UNK
     Route: 042
     Dates: start: 20120524, end: 20120527
  2. ADCAL-D3 [Concomitant]
     Dosage: 1 UNK, UNK
  3. ALENDRONIC ACID [Concomitant]
     Dosage: 1 DF, QW
  4. ASPIRIN [Concomitant]
     Dosage: 75 MG, QD
  5. ATORVASTATIN [Concomitant]
     Dosage: 40 MG, QD
  6. BUMETANIDE [Concomitant]
     Dosage: 5 MG, QD
  7. CLOPIDOGREL [Concomitant]
     Dosage: 75 MG, QD
  8. DOCUSATE SODIUM [Concomitant]
     Dosage: 100 MG, BID
  9. FERROUS SULFATE [Concomitant]
     Dosage: 200 MG, BID
  10. FOLIC ACID [Concomitant]
     Dosage: 5 MG, QD
  11. LACTULOSE [Concomitant]
     Dosage: 15 ML, BID
  12. MORPHINE SULFATE [Concomitant]
     Dosage: 1 DF, PRN
  13. OMEPRAZOLE [Concomitant]
     Dosage: 40 MG, QD
  14. ACETAMINOPHEN [Concomitant]
     Dosage: 1000 MG, PRN
  15. RAMIPRIL [Concomitant]
     Dosage: 1.25 MG, QD
  16. SENNA [Concomitant]
     Dosage: 7.5 MG, QD
  17. VALPROATE SODIUM [Concomitant]
     Dosage: 300 MG, BID
  18. ZAPAIN [Concomitant]
  19. ZOMORPH [Concomitant]
     Dosage: 30 MG, BID
  20. MUCOGEL [Concomitant]

REACTIONS (1)
  - Epilepsy [Not Recovered/Not Resolved]
